FAERS Safety Report 8457007-7 (Version None)
Quarter: 2012Q2

REPORT INFORMATION
  Report Type: 
  Country: None (occurrence: None)
  Receive Date: 20120621
  Receipt Date: 20120611
  Transmission Date: 20120825
  Serious: Yes (Hospitalization)
  Sender: FDA-Public Use
  Company Number: BE-ABBOTT-12P-013-0944852-04

PATIENT
  Sex: Female

DRUGS (13)
  1. D-CURE [Concomitant]
     Indication: OSTEOPOROSIS
     Dates: start: 20071211
  2. FERROGRADUMET [Concomitant]
     Indication: PROPHYLAXIS
  3. HUMIRA [Suspect]
     Indication: CROHN'S DISEASE
     Route: 058
     Dates: start: 20080414, end: 20080414
  4. MEDROL [Concomitant]
     Indication: ERYTHEMA
     Dates: start: 20080407, end: 20080414
  5. CALCIUM CARBONATE [Concomitant]
     Indication: OSTEOPOROSIS
     Dates: start: 20071211
  6. NEXIUM [Concomitant]
     Indication: OESOPHAGITIS
     Dates: start: 19970101
  7. LEVOTHYROXINE SODIUM [Concomitant]
     Dates: start: 20111019
  8. XANAX [Concomitant]
     Indication: ANXIETY
     Dates: start: 20071110
  9. MEDROL [Concomitant]
     Indication: PRURIGO
     Dates: start: 20080415, end: 20080501
  10. MEDROL [Concomitant]
     Dates: start: 20080501, end: 20110810
  11. LEVOTHYROXINE SODIUM [Concomitant]
     Indication: HYPOTHYROIDISM
     Dates: start: 20050831, end: 20100426
  12. FERROGRADUMET [Concomitant]
     Indication: IRON DEFICIENCY
     Dates: start: 20090101
  13. LORAZEPAM [Concomitant]
     Indication: ANXIETY
     Dates: start: 20071122

REACTIONS (2)
  - BILE DUCT STENOSIS [None]
  - CONDITION AGGRAVATED [None]
